FAERS Safety Report 20331257 (Version 3)
Quarter: 2023Q2

REPORT INFORMATION
  Report Type: Report from Study
  Country: US (occurrence: US)
  Receive Date: 20220113
  Receipt Date: 20230404
  Transmission Date: 20230721
  Serious: Yes (Other)
  Sender: FDA-Public Use
  Company Number: US-drreddys-SPO/USA/22/0145603

PATIENT
  Age: 32 Year
  Sex: Female

DRUGS (3)
  1. ZENATANE [Suspect]
     Active Substance: ISOTRETINOIN
     Indication: Product used for unknown indication
     Dosage: RMA ISSUE DATE:12 SEPTEMBER 2019 12:00:00 AM
     Dates: start: 20211130
  2. ZENATANE [Suspect]
     Active Substance: ISOTRETINOIN
     Dosage: RMA ISSUE DATE:09 NOVEMBER 2020 03:19:05 PM, 10 DECEMBER 2020 10:47:41 AM, 11 JANUARY 2021 01:33:22
  3. ZENATANE [Suspect]
     Active Substance: ISOTRETINOIN
     Dosage: RMA ISSUE DATE: 25 MARCH 2021 10:01:15 AM, 27 APRIL 2021 06:10:43 PM, 28 MAY 2021 10:53:17 AM, 30 NO
     Dates: end: 20211229

REACTIONS (2)
  - Exposure during pregnancy [Recovered/Resolved]
  - Normal newborn [Recovered/Resolved]

NARRATIVE: CASE EVENT DATE: 20211229
